FAERS Safety Report 20545309 (Version 4)
Quarter: 2023Q4

REPORT INFORMATION
  Report Type: Spontaneous
  Country: CA (occurrence: CA)
  Receive Date: 20220303
  Receipt Date: 20231228
  Transmission Date: 20240110
  Serious: Yes (Other)
  Sender: FDA-Public Use
  Company Number: CA-TAKEDA-2017TUS018889

PATIENT
  Age: 60 Year
  Sex: Male

DRUGS (21)
  1. ALVESCO [Suspect]
     Active Substance: CICLESONIDE
     Route: 065
     Dates: start: 2015
  2. VEDOLIZUMAB [Suspect]
     Active Substance: VEDOLIZUMAB
     Route: 065
     Dates: start: 20170601
  3. VEDOLIZUMAB [Suspect]
     Active Substance: VEDOLIZUMAB
     Route: 065
     Dates: start: 2015
  4. VEDOLIZUMAB [Suspect]
     Active Substance: VEDOLIZUMAB
     Route: 065
  5. ENTYVIO [Suspect]
     Active Substance: VEDOLIZUMAB
     Indication: Crohn^s disease
     Route: 042
     Dates: start: 20170601
  6. PREDNISONE [Concomitant]
     Active Substance: PREDNISONE
     Route: 065
  7. PREDNISONE [Concomitant]
     Active Substance: PREDNISONE
     Route: 065
  8. ALBUTEROL [Concomitant]
     Active Substance: ALBUTEROL
  9. COLESEVELAM HYDROCHLORIDE [Concomitant]
     Active Substance: COLESEVELAM HYDROCHLORIDE
  10. VITAMIN B12 [Concomitant]
     Active Substance: CYANOCOBALAMIN
  11. LORAZEPAM [Concomitant]
     Active Substance: LORAZEPAM
  12. RHINOCORT AQUA [Concomitant]
     Active Substance: BUDESONIDE
     Dates: start: 20160526
  13. LOMOTIL [Concomitant]
     Active Substance: ATROPINE SULFATE\DIPHENOXYLATE HYDROCHLORIDE
  14. EPIPEN [Concomitant]
     Active Substance: EPINEPHRINE
  15. IRON [Concomitant]
     Active Substance: IRON
  16. VITAMIN C [Concomitant]
     Active Substance: ASCORBIC ACID
  17. CALCIUM [Concomitant]
     Active Substance: CALCIUM
  18. VITAMIN D NOS [Concomitant]
     Active Substance: VITAMIN D NOS
  19. LOPERAMIDE [Concomitant]
     Active Substance: LOPERAMIDE
  20. ATROPINE SULFATE [Concomitant]
     Active Substance: ATROPINE SULFATE
  21. VITAMINS [Concomitant]
     Active Substance: VITAMINS

REACTIONS (6)
  - Crohn^s disease [Not Recovered/Not Resolved]
  - Skin infection [Recovered/Resolved]
  - Blood pressure increased [Unknown]
  - Stress [Unknown]
  - Drug ineffective [Unknown]
  - Illness [Unknown]

NARRATIVE: CASE EVENT DATE: 20170101
